FAERS Safety Report 11868061 (Version 1)
Quarter: 2015Q4

REPORT INFORMATION
  Report Type: Spontaneous
  Country: FR (occurrence: FR)
  Receive Date: 20151224
  Receipt Date: 20151224
  Transmission Date: 20160305
  Serious: Yes (Other)
  Sender: FDA-Public Use
  Company Number: FR-ASTRAZENECA-2015SF29141

PATIENT
  Age: 22690 Day
  Sex: Male
  Weight: 111 kg

DRUGS (9)
  1. METFORMIN [Concomitant]
     Active Substance: METFORMIN HYDROCHLORIDE
     Indication: TYPE 2 DIABETES MELLITUS
  2. DETENSIEL [Concomitant]
     Active Substance: BISOPROLOL FUMARATE
  3. BYDUREON [Suspect]
     Active Substance: EXENATIDE
     Indication: TYPE 2 DIABETES MELLITUS
     Route: 058
     Dates: start: 20151021, end: 201512
  4. MIANSERIN [Concomitant]
     Active Substance: MIANSERIN
     Indication: DEPRESSION
  5. TRIATEC [Concomitant]
     Active Substance: RAMIPRIL
  6. PLAVIX [Concomitant]
     Active Substance: CLOPIDOGREL BISULFATE
  7. LERCAN [Concomitant]
     Active Substance: LERCANIDIPINE
  8. METFORMIN [Concomitant]
     Active Substance: METFORMIN HYDROCHLORIDE
     Indication: TYPE 2 DIABETES MELLITUS
     Dates: end: 201512
  9. LANTUS [Concomitant]
     Active Substance: INSULIN GLARGINE
     Indication: TYPE 2 DIABETES MELLITUS

REACTIONS (12)
  - Ageusia [Recovered/Resolved]
  - Hyperglycaemia [Unknown]
  - Hypertension [Recovering/Resolving]
  - Fatigue [Recovered/Resolved]
  - Dehydration [Recovered/Resolved]
  - Hyperkalaemia [Recovering/Resolving]
  - Stress [Unknown]
  - Decreased appetite [Recovered/Resolved]
  - Weight decreased [Unknown]
  - Nausea [Recovered/Resolved]
  - Renal impairment [Recovering/Resolving]
  - Off label use [Recovered/Resolved]

NARRATIVE: CASE EVENT DATE: 20151021
